FAERS Safety Report 7246342-6 (Version None)
Quarter: 2011Q1

REPORT INFORMATION
  Report Type: 
  Country: None (occurrence: None)
  Receive Date: 20110126
  Receipt Date: 20110120
  Transmission Date: 20110831
  Serious: Yes (Hospitalization)
  Sender: FDA-Public Use
  Company Number: AT-AMGEN-AUTSP2011003806

PATIENT
  Sex: Female

DRUGS (2)
  1. CHEMOTHERAPEUTICS NOS [Concomitant]
  2. NEULASTA [Suspect]
     Indication: CHEMOTHERAPY

REACTIONS (4)
  - URINARY TRACT INFECTION [None]
  - MALAISE [None]
  - PYREXIA [None]
  - DEHYDRATION [None]
